FAERS Safety Report 14574217 (Version 1)
Quarter: 2018Q1

REPORT INFORMATION
  Report Type: Spontaneous
  Country: US (occurrence: US)
  Receive Date: 20180226
  Receipt Date: 20180226
  Transmission Date: 20180509
  Serious: Yes (Hospitalization)
  Sender: FDA-Public Use
  Company Number: US-ACTELION-A-US2018-166255

PATIENT
  Age: 57 Year
  Sex: Female

DRUGS (5)
  1. HOMATROPINE [Concomitant]
     Active Substance: HOMATROPINE\HOMATROPINE HYDROBROMIDE
  2. OPSUMIT [Suspect]
     Active Substance: MACITENTAN
     Indication: PULMONARY ARTERIAL HYPERTENSION
     Dosage: 10 MG, UNK
     Route: 048
  3. HYDROCODONE [Concomitant]
     Active Substance: HYDROCODONE
  4. TORSEMIDE. [Concomitant]
     Active Substance: TORSEMIDE
  5. NYSTOP [Concomitant]
     Active Substance: NYSTATIN

REACTIONS (3)
  - International normalised ratio increased [Recovering/Resolving]
  - Fatigue [Recovering/Resolving]
  - Haemoglobin decreased [Unknown]
